FAERS Safety Report 22196285 (Version 1)
Quarter: 2023Q2

REPORT INFORMATION
  Report Type: Spontaneous
  Country: US (occurrence: US)
  Receive Date: 20230411
  Receipt Date: 20230411
  Transmission Date: 20230722
  Serious: No
  Sender: FDA-Public Use
  Company Number: US-Accord-274031

PATIENT
  Sex: Male

DRUGS (1)
  1. TEMOZOLOMIDE [Suspect]
     Active Substance: TEMOZOLOMIDE
     Indication: Product used for unknown indication
     Dosage: STRENGTH: 140 MG AND 5 MG?DOSE: ONE 140MG AND TWO 5MG

REACTIONS (3)
  - Product container issue [Unknown]
  - Product contamination physical [Unknown]
  - Poor quality product administered [Unknown]
